FAERS Safety Report 12630227 (Version 2)
Quarter: 2016Q3

REPORT INFORMATION
  Report Type: Spontaneous
  Country: CL (occurrence: CL)
  Receive Date: 20160808
  Receipt Date: 20160901
  Transmission Date: 20161109
  Serious: Yes (Hospitalization)
  Sender: FDA-Public Use
  Company Number: US-ASTRAZENECA-2016SE84955

PATIENT
  Age: 303 Day
  Sex: Female
  Weight: 8 kg

DRUGS (2)
  1. SYNAGIS [Suspect]
     Active Substance: PALIVIZUMAB
     Indication: ANTIVIRAL PROPHYLAXIS
     Dosage: 1ST DOSE
     Route: 030
     Dates: start: 20160509, end: 20160509
  2. SYNAGIS [Suspect]
     Active Substance: PALIVIZUMAB
     Indication: ANTIVIRAL PROPHYLAXIS
     Dosage: 120MG, 2ND DOSE, MORE THAN 30 DAYS FROM FIRST DOSE
     Route: 030
     Dates: start: 20160630, end: 20160630

REACTIONS (3)
  - Respiratory syncytial virus infection [Unknown]
  - Bronchiolitis [Unknown]
  - Circumstance or information capable of leading to medication error [Unknown]

NARRATIVE: CASE EVENT DATE: 20160701
